FAERS Safety Report 10256625 (Version 2)
Quarter: 2015Q3

REPORT INFORMATION
  Report Type: Report from Study
  Country: US (occurrence: US)
  Receive Date: 20140624
  Receipt Date: 20150730
  Transmission Date: 20151125
  Serious: Yes (Other)
  Sender: FDA-Public Use
  Company Number: US-GILEAD-2014-0106524

PATIENT
  Age: 85 Year
  Sex: Female

DRUGS (1)
  1. RANOLAZINE [Suspect]
     Active Substance: RANOLAZINE
     Indication: ANGINA PECTORIS
     Dosage: 500 MG, QD
     Route: 065
     Dates: start: 20140524

REACTIONS (15)
  - Muscle spasms [Unknown]
  - Abnormal dreams [Unknown]
  - Constipation [Unknown]
  - Gait disturbance [Unknown]
  - Chest pain [Unknown]
  - Pain [Unknown]
  - Visual impairment [Unknown]
  - Abnormal dreams [Unknown]
  - Tremor [Unknown]
  - Decreased appetite [Unknown]
  - Muscle twitching [Unknown]
  - Hallucination [Unknown]
  - Hiccups [Unknown]
  - Asthenia [Unknown]
  - Vision blurred [Unknown]

NARRATIVE: CASE EVENT DATE: 20140527
